FAERS Safety Report 19465305 (Version 5)
Quarter: 2022Q3

REPORT INFORMATION
  Report Type: Spontaneous
  Country: CA (occurrence: CA)
  Receive Date: 20210624
  Receipt Date: 20220712
  Transmission Date: 20221027
  Serious: Yes (Hospitalization, Other)
  Sender: FDA-Public Use
  Company Number: CA-GLAXOSMITHKLINE-CA2021AMR134329

PATIENT

DRUGS (3)
  1. ZEJULA [Suspect]
     Active Substance: NIRAPARIB
     Indication: Ovarian epithelial cancer recurrent
     Dosage: 100 MG, QD
     Route: 048
     Dates: start: 20201005
  2. ZEJULA [Suspect]
     Active Substance: NIRAPARIB
     Indication: Fallopian tube cancer
  3. ZEJULA [Suspect]
     Active Substance: NIRAPARIB
     Indication: Malignant peritoneal neoplasm

REACTIONS (7)
  - Malignant neoplasm progression [Not Recovered/Not Resolved]
  - Intestinal obstruction [Recovered/Resolved]
  - Metastases to peritoneum [Not Recovered/Not Resolved]
  - Hospitalisation [Recovered/Resolved]
  - Intestinal dilatation [Recovered/Resolved]
  - Abdominal hernia [Recovering/Resolving]
  - Gastrointestinal wall thickening [Not Recovered/Not Resolved]
